FAERS Safety Report 25995444 (Version 1)
Quarter: 2025Q4

REPORT INFORMATION
  Report Type: Spontaneous
  Country: US (occurrence: US)
  Receive Date: 20251104
  Receipt Date: 20251104
  Transmission Date: 20260118
  Serious: Yes (Other)
  Sender: SANDOZ
  Company Number: US-SANDOZ-SDZ2025US080829

PATIENT
  Age: 34 Year
  Sex: Female

DRUGS (7)
  1. HYDROXYCHLOROQUINE [Suspect]
     Active Substance: HYDROXYCHLOROQUINE
     Indication: Neonatal lupus erythematosus
     Dosage: 400 MG, QD
     Route: 065
  2. ASPIRIN [Concomitant]
     Active Substance: ASPIRIN
     Indication: Pre-eclampsia
     Dosage: 81 MG
     Route: 065
  3. AZATHIOPRINE [Concomitant]
     Active Substance: AZATHIOPRINE
     Indication: Neonatal lupus erythematosus
     Dosage: 150 MG
     Route: 065
  4. ROZANOLIXIZUMAB [Concomitant]
     Active Substance: ROZANOLIXIZUMAB
     Dosage: UNK, QW UNTILL WEEK 25
     Route: 058
  5. ROZANOLIXIZUMAB [Concomitant]
     Active Substance: ROZANOLIXIZUMAB
     Dosage: 2 DOSES AT WEEKS 27AND 28
     Route: 058
  6. ROZANOLIXIZUMAB [Concomitant]
     Active Substance: ROZANOLIXIZUMAB
     Indication: Symptomatic treatment
     Dosage: 560 MG IN 4 ML FROM GESTATIONAL WEEK 14 TO WEEK 23
     Route: 058
  7. ROZANOLIXIZUMAB [Concomitant]
     Active Substance: ROZANOLIXIZUMAB
     Dosage: AT WEEK 24 AND 4DAYS.
     Route: 058

REACTIONS (3)
  - Maternal disease complicating pregnancy [Unknown]
  - Drug ineffective [Unknown]
  - Exposure during pregnancy [Unknown]
